FAERS Safety Report 25013833 (Version 1)
Quarter: 2025Q1

REPORT INFORMATION
  Report Type: Spontaneous
  Country: CA (occurrence: None)
  Receive Date: 20250226
  Receipt Date: 20250226
  Transmission Date: 20250409
  Serious: Yes (Other)
  Sender: FDA-CTU
  Company Number: None

PATIENT
  Age: 53 Year
  Sex: Female
  Weight: 77.85 kg

DRUGS (8)
  1. MOUNJARO [Suspect]
     Active Substance: TIRZEPATIDE
     Indication: Weight decreased
     Route: 058
  2. COLLAGEN [Concomitant]
     Active Substance: COLLAGEN
  3. MAGNESIUM [Concomitant]
     Active Substance: MAGNESIUM
  4. VITAMIN D [Concomitant]
     Active Substance: VITAMIN D NOS
  5. INOSITOL [Concomitant]
     Active Substance: INOSITOL
  6. OMEGA 3 [Concomitant]
     Active Substance: CAPSAICIN
  7. HERBALS\TURMERIC [Concomitant]
     Active Substance: HERBALS\TURMERIC
  8. PROBIOTICS NOS [Concomitant]
     Active Substance: PROBIOTICS NOS

REACTIONS (5)
  - Pyrexia [None]
  - Dysphonia [None]
  - Pain of skin [None]
  - Pain [None]
  - Lymphoedema [None]

NARRATIVE: CASE EVENT DATE: 20250223
